FAERS Safety Report 11003505 (Version 1)
Quarter: 2015Q2

REPORT INFORMATION
  Report Type: Spontaneous
  Country: ES (occurrence: ES)
  Receive Date: 20150409
  Receipt Date: 20150409
  Transmission Date: 20150821
  Serious: Yes (Other)
  Sender: FDA-Public Use
  Company Number: ES-RANBAXY-2012R1-62864

PATIENT
  Age: 28 Year
  Sex: Male
  Weight: 45 kg

DRUGS (3)
  1. IMIPENEM [Interacting]
     Active Substance: IMIPENEM
     Indication: PROTEUS TEST POSITIVE
     Dosage: 1000 MG, TID
     Route: 042
  2. IMIPENEM [Interacting]
     Active Substance: IMIPENEM
     Indication: PSEUDOMONAS INFECTION
  3. VALPROIC ACID. [Suspect]
     Active Substance: VALPROIC ACID
     Indication: PRODUCT USED FOR UNKNOWN INDICATION
     Dosage: 400 MG, QID
     Route: 050

REACTIONS (2)
  - Drug interaction [Recovered/Resolved]
  - Drug level decreased [Recovered/Resolved]
